FAERS Safety Report 6203500-7 (Version None)
Quarter: 2009Q2

REPORT INFORMATION
  Report Type: 
  Country: None (occurrence: None)
  Receive Date: 20090527
  Receipt Date: 20090513
  Transmission Date: 20091009
  Serious: Yes (Other)
  Sender: FDA-Public Use
  Company Number: PHHY2009IT18381

PATIENT
  Age: 80 Year
  Sex: Male

DRUGS (2)
  1. RASILEZ [Suspect]
     Indication: HYPERTENSION
     Dosage: 150 MG, UNK
     Route: 048
  2. PRITOR [Concomitant]
     Indication: HYPERTENSION
     Dosage: 40 MG, UNK
     Route: 048

REACTIONS (5)
  - BLOOD CREATININE INCREASED [None]
  - HYPERSENSITIVITY [None]
  - PRURITUS [None]
  - RASH ERYTHEMATOUS [None]
  - SKIN EXFOLIATION [None]
